FAERS Safety Report 6524589-1 (Version None)
Quarter: 2010Q1

REPORT INFORMATION
  Report Type: 
  Country: None (occurrence: None)
  Receive Date: 20100104
  Receipt Date: 20091222
  Transmission Date: 20100710
  Serious: Yes (Hospitalization)
  Sender: FDA-Public Use
  Company Number: PHHY2009IT58509

PATIENT
  Sex: Female

DRUGS (1)
  1. VOLTFAST [Suspect]
     Indication: CHEST PAIN
     Dosage: 50 MG, 2 POSOLOGIC UNITS
     Route: 048
     Dates: start: 20091009, end: 20091009

REACTIONS (2)
  - DYSPHAGIA [None]
  - HAEMATOCHEZIA [None]
